FAERS Safety Report 20682071 (Version 2)
Quarter: 2022Q3

REPORT INFORMATION
  Report Type: Spontaneous
  Country: US (occurrence: US)
  Receive Date: 20220407
  Receipt Date: 20220912
  Transmission Date: 20221027
  Serious: Yes (Hospitalization)
  Sender: FDA-Public Use
  Company Number: US-NOVARTISTESTPH-NVSC2022US078864

PATIENT
  Sex: Female

DRUGS (1)
  1. VOTRIENT [Suspect]
     Active Substance: PAZOPANIB HYDROCHLORIDE
     Indication: Soft tissue sarcoma
     Dosage: 400 MG, QD (BY MOUTH)
     Route: 048
     Dates: start: 20220316

REACTIONS (4)
  - Hypertension [Unknown]
  - Headache [Unknown]
  - Paraesthesia [Unknown]
  - Fatigue [Unknown]
